FAERS Safety Report 10809010 (Version 1)
Quarter: 2015Q1

REPORT INFORMATION
  Report Type: Report from Study
  Country: US (occurrence: US)
  Receive Date: 20150217
  Receipt Date: 20150217
  Transmission Date: 20150721
  Serious: No
  Sender: FDA-Public Use
  Company Number: US-ABBVIE-14K-163-1213101-00

PATIENT
  Age: 24 Year
  Sex: Female

DRUGS (8)
  1. PREDNISONE. [Suspect]
     Active Substance: PREDNISONE
     Indication: PRODUCT USED FOR UNKNOWN INDICATION
     Dosage: 30 DAYS OF PREDNISOLONE
     Dates: start: 201401, end: 201402
  2. MULTIVITAMIN [Concomitant]
     Active Substance: VITAMINS
     Indication: PRODUCT USED FOR UNKNOWN INDICATION
  3. VITAMIN D3 [Concomitant]
     Active Substance: CHOLECALCIFEROL
     Indication: PRODUCT USED FOR UNKNOWN INDICATION
  4. PREDNISONE. [Suspect]
     Active Substance: PREDNISONE
     Dosage: 30 DAYS OF PREDNISOLONE, ONLY 5 DAYS LEFT
     Dates: start: 201402
  5. HUMIRA [Suspect]
     Active Substance: ADALIMUMAB
     Dates: start: 20140211
  6. HUMIRA [Suspect]
     Active Substance: ADALIMUMAB
     Indication: CROHN^S DISEASE
     Dates: start: 20140114, end: 20140114
  7. LIALDA [Suspect]
     Active Substance: MESALAMINE
     Indication: PRODUCT USED FOR UNKNOWN INDICATION
     Dosage: TWO PILLS
     Dates: end: 20140327
  8. HUMIRA [Suspect]
     Active Substance: ADALIMUMAB
     Dates: start: 20140128, end: 20140128

REACTIONS (7)
  - Alopecia [Recovered/Resolved]
  - Anxiety [Unknown]
  - Skin discolouration [Recovered/Resolved]
  - Drug ineffective [Not Recovered/Not Resolved]
  - Injection site pain [Not Recovered/Not Resolved]
  - Haematochezia [Not Recovered/Not Resolved]
  - Crohn^s disease [Not Recovered/Not Resolved]

NARRATIVE: CASE EVENT DATE: 201401
